FAERS Safety Report 6412102-9 (Version None)
Quarter: 2009Q4

REPORT INFORMATION
  Report Type: 
  Country: None (occurrence: None)
  Receive Date: 20091023
  Receipt Date: 20091005
  Transmission Date: 20100525
  Serious: Yes (Hospitalization)
  Sender: FDA-Public Use
  Company Number: A0808223A

PATIENT
  Age: 48 Year
  Sex: Female
  Weight: 62 kg

DRUGS (2)
  1. ALLI [Suspect]
     Dosage: 60MG SINGLE DOSE
     Route: 048
  2. XENICAL [Suspect]
     Route: 048

REACTIONS (5)
  - ABDOMINAL PAIN UPPER [None]
  - CHOLECYSTECTOMY [None]
  - GALLBLADDER DISORDER [None]
  - PROCEDURAL PAIN [None]
  - PRODUCT QUALITY ISSUE [None]
